FAERS Safety Report 4650089-X (Version None)
Quarter: 2005Q2

REPORT INFORMATION
  Report Type: 
  Country: None (occurrence: None)
  Receive Date: 20050428
  Receipt Date: 20050412
  Transmission Date: 20051028
  Serious: No
  Sender: FDA-Public Use
  Company Number: 10913

PATIENT
  Sex: 0

DRUGS (8)
  1. METHOTREXATE [Suspect]
     Indication: ACUTE LYMPHOCYTIC LEUKAEMIA
     Dosage: 1500 MG/M2 OTH  IV
     Route: 042
  2. PREDNISOONE [Concomitant]
  3. VINCRISTINE [Concomitant]
  4. ASPARAGINASE [Concomitant]
  5. DEXAMETHASONE [Concomitant]
  6. VINDESINE [Concomitant]
  7. DOXORUBICIN HCL [Concomitant]
  8. CYTARABINE [Concomitant]

REACTIONS (3)
  - ACUTE LYMPHOCYTIC LEUKAEMIA RECURRENT [None]
  - MENINGEAL LEUKAEMIA [None]
  - TESTICULAR NEOPLASM [None]
